FAERS Safety Report 5163875-7 (Version None)
Quarter: 2006Q4

REPORT INFORMATION
  Report Type: 
  Country: None (occurrence: None)
  Receive Date: 20061204
  Receipt Date: 20061127
  Transmission Date: 20070319
  Serious: Yes (Hospitalization)
  Sender: FDA-Public Use
  Company Number: US-BRISTOL-MYERS SQUIBB COMPANY-13590286

PATIENT
  Age: 64 Year
  Sex: Female

DRUGS (11)
  1. CYTOXAN [Suspect]
     Indication: BREAST CANCER
     Route: 042
     Dates: start: 20061023, end: 20061023
  2. ADRIAMYCIN PFS [Suspect]
     Indication: BREAST CANCER
     Route: 042
     Dates: start: 20061023, end: 20061023
  3. BEVACIZUMAB [Suspect]
     Indication: BREAST CANCER
     Route: 042
     Dates: start: 20061023, end: 20061023
  4. NEULASTA [Suspect]
     Route: 058
     Dates: start: 20061024, end: 20061024
  5. LIPITOR [Concomitant]
  6. CELEBREX [Concomitant]
  7. COZAAR [Concomitant]
  8. HYDROCHLOROTHIAZIDE [Concomitant]
  9. ASPIRIN [Concomitant]
  10. EFFEXOR [Concomitant]
  11. ARANESP [Concomitant]

REACTIONS (2)
  - FEBRILE NEUTROPENIA [None]
  - PANCYTOPENIA [None]
